FAERS Safety Report 7567946-7 (Version None)
Quarter: 2011Q2

REPORT INFORMATION
  Report Type: 
  Country: None (occurrence: None)
  Receive Date: 20110623
  Receipt Date: 20110613
  Transmission Date: 20111010
  Serious: Yes (Hospitalization)
  Sender: FDA-Public Use
  Company Number: IN-BRISTOL-MYERS SQUIBB COMPANY-14513147

PATIENT
  Age: 73 Year
  Sex: Male

DRUGS (9)
  1. LOSARTAN POTASSIUM [Concomitant]
     Route: 048
     Dates: start: 20060119, end: 20090225
  2. PLACEBO [Suspect]
     Indication: THROMBOSIS PROPHYLAXIS
     Route: 048
     Dates: start: 20080121, end: 20090219
  3. TRAMADOL HCL [Concomitant]
     Route: 042
     Dates: start: 20090219, end: 20090220
  4. PANTOPRAZOLE [Concomitant]
     Route: 048
     Dates: start: 20080429, end: 20090503
  5. ATIVAN [Concomitant]
     Route: 048
     Dates: start: 20090219, end: 20090225
  6. WARFARIN SODIUM [Suspect]
     Indication: THROMBOSIS PROPHYLAXIS
     Route: 048
     Dates: start: 20080121, end: 20090219
  7. MULTI-VITAMINS [Concomitant]
     Dates: start: 20080524, end: 20090221
  8. ACETAMINOPHEN [Concomitant]
     Route: 048
     Dates: start: 20080430, end: 20090503
  9. DICLOFENAC SODIUM [Concomitant]
     Dosage: FORM=GEL
     Route: 048
     Dates: start: 20090105, end: 20090219

REACTIONS (1)
  - METASTATIC RENAL CELL CARCINOMA [None]
